FAERS Safety Report 7060836-8 (Version None)
Quarter: 2010Q4

REPORT INFORMATION
  Report Type: 
  Country: None (occurrence: None)
  Receive Date: 20101025
  Receipt Date: 20101019
  Transmission Date: 20110411
  Serious: Yes (Death)
  Sender: FDA-Public Use
  Company Number: US-BAXTER-2010BH026334

PATIENT

DRUGS (10)
  1. CYCLOPHOSPHAMIDE [Suspect]
     Indication: B-CELL LYMPHOMA
     Route: 065
  2. CYCLOPHOSPHAMIDE [Suspect]
     Route: 065
  3. CYCLOPHOSPHAMIDE [Suspect]
     Route: 065
  4. RITUXIMAB [Suspect]
     Indication: B-CELL LYMPHOMA
     Route: 065
  5. DOXORUBICIN HCL [Suspect]
     Indication: B-CELL LYMPHOMA
     Route: 065
  6. VINCRISTINE SULFATE [Suspect]
     Indication: B-CELL LYMPHOMA
     Route: 065
  7. ETOPOSIDE [Suspect]
     Indication: B-CELL LYMPHOMA
     Route: 065
  8. ETOPOSIDE [Suspect]
     Route: 065
  9. ETOPOSIDE [Suspect]
     Route: 065
  10. PREDNISONE [Suspect]
     Indication: B-CELL LYMPHOMA
     Route: 065

REACTIONS (1)
  - DEATH [None]
